FAERS Safety Report 10189126 (Version 1)
Quarter: 2014Q2

REPORT INFORMATION
  Report Type: Spontaneous
  Country: BR (occurrence: BR)
  Receive Date: 20140522
  Receipt Date: 20140522
  Transmission Date: 20141212
  Serious: Yes (Other)
  Sender: FDA-Public Use
  Company Number: BR-PFIZER INC-2014134749

PATIENT
  Age: 69 Year
  Sex: Male
  Weight: 64 kg

DRUGS (3)
  1. LIPITOR [Suspect]
     Indication: BLOOD CHOLESTEROL
     Dosage: 20 MG, UNK
     Route: 048
     Dates: start: 2010, end: 20140513
  2. PANTOPRAZOLE [Concomitant]
     Indication: GASTRITIS
     Dosage: 1 DF, DAILY
     Dates: start: 2004
  3. PLAKETA [Concomitant]
     Indication: COAGULOPATHY
     Dosage: 1 DF, DAILY
     Dates: start: 2004

REACTIONS (2)
  - Cyst [Unknown]
  - Drug ineffective [Unknown]
